FAERS Safety Report 5133149-9 (Version None)
Quarter: 2006Q4

REPORT INFORMATION
  Report Type: 
  Country: None (occurrence: None)
  Receive Date: 20061018
  Receipt Date: 20061002
  Transmission Date: 20070319
  Serious: Yes (Life-Threatening, Hospitalization)
  Sender: FDA-Public Use
  Company Number: 2006001903

PATIENT
  Age: 54 Year
  Sex: Male

DRUGS (10)
  1. ERLOTINIB                   (TABLET) [Suspect]
     Indication: PANCREATIC CARCINOMA METASTATIC
     Dosage: 100 MG (QD), ORAL
     Route: 048
     Dates: start: 20060907, end: 20060925
  2. BEVACIZUMAB                          (INJECTION FOR INFUSION) [Suspect]
     Dosage: 300 MG (EVERY 2 WEEKS)
     Route: 042
     Dates: start: 20060907, end: 20060925
  3. GEMCITABINE [Suspect]
     Dosage: 1615 MG (Q WEEK), INTRAVENOUS
     Route: 042
     Dates: start: 20060907, end: 20060925
  4. LAMIVUDINE [Concomitant]
  5. MAXOLON [Concomitant]
  6. PROCHLORPERAZINE MALEATE [Concomitant]
  7. ACETAMINOPHEN [Concomitant]
  8. TRAMADOL HCL [Concomitant]
  9. NEXIUM [Concomitant]
  10. CHLORPROMAZINE HCL [Concomitant]

REACTIONS (4)
  - BACTERIAL INFECTION [None]
  - BLOOD CULTURE POSITIVE [None]
  - DISSEMINATED INTRAVASCULAR COAGULATION [None]
  - HAEMOGLOBIN DECREASED [None]
